FAERS Safety Report 12054055 (Version 2)
Quarter: 2016Q2

REPORT INFORMATION
  Report Type: Spontaneous
  Country: US (occurrence: US)
  Receive Date: 20160209
  Receipt Date: 20160512
  Transmission Date: 20160815
  Serious: No
  Sender: FDA-Public Use
  Company Number: US-SA-2016SA004149

PATIENT
  Age: 70 Year
  Sex: Male
  Weight: 97.52 kg

DRUGS (13)
  1. VITAMIN D3 [Concomitant]
     Active Substance: CHOLECALCIFEROL
  2. ZETIA [Concomitant]
     Active Substance: EZETIMIBE
     Indication: BLOOD CHOLESTEROL INCREASED
     Dates: start: 1990, end: 20151221
  3. ZOCOR [Concomitant]
     Active Substance: SIMVASTATIN
     Indication: BLOOD CHOLESTEROL INCREASED
     Dates: start: 1990
  4. VITAMIN C [Concomitant]
     Active Substance: ASCORBIC ACID
  5. SUCRALFATE. [Concomitant]
     Active Substance: SUCRALFATE
     Dates: start: 20151209
  6. PRALUENT [Suspect]
     Active Substance: ALIROCUMAB
     Indication: HYPERLIPIDAEMIA
     Route: 065
     Dates: start: 20151221
  7. PRALUENT [Suspect]
     Active Substance: ALIROCUMAB
     Indication: LOW DENSITY LIPOPROTEIN INCREASED
     Route: 065
     Dates: start: 20151221
  8. CENTRUM SILVER [Concomitant]
     Active Substance: MINERALS\VITAMINS
  9. VITAMIN E [Concomitant]
     Active Substance: .ALPHA.-TOCOPHEROL
  10. PRILOSEC [Concomitant]
     Active Substance: OMEPRAZOLE MAGNESIUM
     Indication: GASTROOESOPHAGEAL REFLUX DISEASE
     Dates: start: 20151209
  11. FISH OIL [Concomitant]
     Active Substance: FISH OIL
  12. ALIROCUMAB PREFILLED PEN [Concomitant]
     Active Substance: ALIROCUMAB
     Indication: HYPERLIPIDAEMIA
     Dates: start: 20151221
  13. PRINIVIL [Concomitant]
     Active Substance: LISINOPRIL
     Indication: BLOOD PRESSURE MEASUREMENT
     Dates: start: 1990

REACTIONS (5)
  - Injection site erythema [Unknown]
  - Injection site inflammation [Unknown]
  - Injection site injury [Recovered/Resolved]
  - Injection site haemorrhage [Unknown]
  - Inappropriate schedule of drug administration [Unknown]

NARRATIVE: CASE EVENT DATE: 20151221
